FAERS Safety Report 18107910 (Version 2)
Quarter: 2020Q3

REPORT INFORMATION
  Report Type: Other
  Country: US (occurrence: US)
  Receive Date: 20200804
  Receipt Date: 20200804
  Transmission Date: 20201103
  Serious: Yes (Other)
  Sender: FDA-Public Use
  Company Number: US-ROCHE-2651093

PATIENT

DRUGS (10)
  1. CAPECITABINE. [Suspect]
     Active Substance: CAPECITABINE
     Indication: GASTROINTESTINAL CARCINOMA
     Route: 065
  2. IRINOTECAN [Suspect]
     Active Substance: IRINOTECAN
     Indication: GASTROINTESTINAL CARCINOMA
     Route: 065
  3. CETUXIMAB. [Suspect]
     Active Substance: CETUXIMAB
     Indication: GASTROINTESTINAL CARCINOMA
     Route: 065
  4. CISPLATIN. [Suspect]
     Active Substance: CISPLATIN
     Indication: GASTROINTESTINAL CARCINOMA
     Route: 065
  5. 5?FLUOROURACIL [Suspect]
     Active Substance: FLUOROURACIL
     Indication: GASTROINTESTINAL CARCINOMA
     Route: 065
  6. DOXORUBICIN [Suspect]
     Active Substance: DOXORUBICIN
     Indication: GASTROINTESTINAL CARCINOMA
     Route: 065
  7. STREPTOZOCIN [Suspect]
     Active Substance: STREPTOZOCIN
     Indication: GASTROINTESTINAL CARCINOMA
     Route: 065
  8. BEVACIZUMAB. [Suspect]
     Active Substance: BEVACIZUMAB
     Indication: GASTROINTESTINAL CARCINOMA
     Route: 065
  9. OXALIPLATIN. [Suspect]
     Active Substance: OXALIPLATIN
     Indication: GASTROINTESTINAL CARCINOMA
     Route: 065
  10. GEMCITABINE. [Suspect]
     Active Substance: GEMCITABINE
     Indication: GASTROINTESTINAL CARCINOMA
     Route: 065

REACTIONS (2)
  - Portal hypertension [Unknown]
  - Hypersplenism [Unknown]
